FAERS Safety Report 6807019-1 (Version None)
Quarter: 2010Q2

REPORT INFORMATION
  Report Type: 
  Country: None (occurrence: None)
  Receive Date: 20100628
  Receipt Date: 20100628
  Transmission Date: 20101027
  Serious: No
  Sender: FDA-Public Use
  Company Number: None

PATIENT
  Sex: Female
  Weight: 66 kg

DRUGS (1)
  1. MEMANTINE HCL [Suspect]
     Dosage: 520 MG

REACTIONS (3)
  - DIZZINESS [None]
  - DRUG DOSE OMISSION [None]
  - NYSTAGMUS [None]
